FAERS Safety Report 8624051-6 (Version None)
Quarter: 2012Q3

REPORT INFORMATION
  Report Type: 
  Country: None (occurrence: None)
  Receive Date: 20120824
  Receipt Date: 20120824
  Transmission Date: 20120928
  Serious: Yes (Hospitalization)
  Sender: FDA-Public Use
  Company Number: None

PATIENT
  Sex: Female

DRUGS (1)
  1. PROCRIT [Suspect]
     Indication: HEPATITIS C
     Dosage: 40,000 UNITS QWEEK SQ
     Route: 058
     Dates: start: 20120726, end: 20120822

REACTIONS (1)
  - VOMITING [None]
